FAERS Safety Report 7228056-1 (Version None)
Quarter: 2011Q1

REPORT INFORMATION
  Report Type: 
  Country: None (occurrence: None)
  Receive Date: 20110114
  Receipt Date: 20110104
  Transmission Date: 20110831
  Serious: Yes (Hospitalization, Other)
  Sender: FDA-Public Use
  Company Number: US-ELI_LILLY_AND_COMPANY-US201011006055

PATIENT
  Sex: Female
  Weight: 86.168 kg

DRUGS (9)
  1. IRON [Concomitant]
  2. CYMBALTA [Concomitant]
  3. NEXIUM [Concomitant]
  4. CALCIUM [Concomitant]
  5. FORTEO [Suspect]
     Indication: OSTEOPOROSIS
     Dosage: 20 UG, DAILY (1/D)
     Route: 058
     Dates: start: 20100910, end: 20101002
  6. LANTUS [Concomitant]
  7. PLAVIX [Concomitant]
  8. TOPROL-XL [Concomitant]
  9. HUMALOG [Concomitant]

REACTIONS (9)
  - FEMUR FRACTURE [None]
  - ERYTHEMA [None]
  - PELVIC FRACTURE [None]
  - CELLULITIS [None]
  - WOUND DRAINAGE [None]
  - FALL [None]
  - OEDEMA PERIPHERAL [None]
  - FRACTURED SACRUM [None]
  - ARTHROPATHY [None]
